FAERS Safety Report 7750432-9 (Version None)
Quarter: 2011Q3

REPORT INFORMATION
  Report Type: 
  Country: None (occurrence: None)
  Receive Date: 20110914
  Receipt Date: 20110909
  Transmission Date: 20111222
  Serious: Yes (Life-Threatening, Other)
  Sender: FDA-Public Use
  Company Number: US-ROXANE LABORATORIES, INC.-2011-RO-01230RO

PATIENT
  Age: 49 Year
  Sex: Male

DRUGS (1)
  1. ZOLPIDEM [Suspect]
     Indication: INSOMNIA

REACTIONS (3)
  - DELIRIUM [None]
  - PARASOMNIA [None]
  - CRANIOCEREBRAL INJURY [None]
